FAERS Safety Report 15948833 (Version 1)
Quarter: 2019Q1

REPORT INFORMATION
  Report Type: Report from Study
  Country: RO (occurrence: RO)
  Receive Date: 20190212
  Receipt Date: 20190212
  Transmission Date: 20190417
  Serious: Yes (Other)
  Sender: FDA-Public Use
  Company Number: RO-EMD SERONO-9070841

PATIENT
  Age: 46 Year
  Sex: Female

DRUGS (3)
  1. REBIF [Suspect]
     Active Substance: INTERFERON BETA-1A
     Indication: SECONDARY PROGRESSIVE MULTIPLE SCLEROSIS
     Route: 058
     Dates: start: 20040701, end: 201811
  2. LIORESAL [Concomitant]
     Active Substance: BACLOFEN
     Dosage: 1/2 TABLET PER DAY BEFORE REBIF TREATMENT
     Route: 048
  3. LIORESAL [Concomitant]
     Active Substance: BACLOFEN
     Indication: MUSCLE TIGHTNESS
     Dosage: BEFORE REBIF TREATMENT
     Route: 048

REACTIONS (14)
  - Movement disorder [Recovering/Resolving]
  - Pain in extremity [Recovering/Resolving]
  - Hypertension [Not Recovered/Not Resolved]
  - Balance disorder [Not Recovered/Not Resolved]
  - Hypersensitivity [Unknown]
  - Depressed mood [Recovered/Resolved]
  - Myalgia [Recovering/Resolving]
  - Muscular weakness [Recovering/Resolving]
  - Pain [Recovering/Resolving]
  - Dysuria [Recovering/Resolving]
  - Dyschezia [Recovering/Resolving]
  - Off label use [Unknown]
  - Insomnia [Not Recovered/Not Resolved]
  - Dysphagia [Recovered/Resolved]

NARRATIVE: CASE EVENT DATE: 20040701
